FAERS Safety Report 22660573 (Version 1)
Quarter: 2023Q2

REPORT INFORMATION
  Report Type: Spontaneous
  Country: US (occurrence: US)
  Receive Date: 20230630
  Receipt Date: 20230630
  Transmission Date: 20230721
  Serious: Yes (Death, Life-Threatening, Hospitalization)
  Sender: FDA-Public Use
  Company Number: US-VERTEX PHARMACEUTICALS-2023-009221

PATIENT
  Age: 26 Year
  Sex: Female

DRUGS (3)
  1. TRIKAFTA [Suspect]
     Active Substance: ELEXACAFTOR\IVACAFTOR\TEZACAFTOR
     Indication: Cystic fibrosis
     Dosage: FULL DOSE
     Route: 048
     Dates: start: 20191126
  2. DULOXETINE [Concomitant]
     Active Substance: DULOXETINE
     Dosage: 20 MG, QD
     Dates: start: 202010
  3. DUPIXENT [Concomitant]
     Active Substance: DUPILUMAB

REACTIONS (5)
  - Inappropriate antidiuretic hormone secretion [Unknown]
  - Brain oedema [Fatal]
  - Brain death [Fatal]
  - Hypoxia [Unknown]
  - Tachycardia [Unknown]

NARRATIVE: CASE EVENT DATE: 20230501
